FAERS Safety Report 4776809-1 (Version None)
Quarter: 2005Q3

REPORT INFORMATION
  Report Type: 
  Country: None (occurrence: None)
  Receive Date: 20050922
  Receipt Date: 20050922
  Transmission Date: 20060218
  Serious: Yes (Other)
  Sender: FDA-Public Use
  Company Number: None

PATIENT
  Sex: Female
  Weight: 68.0396 kg

DRUGS (2)
  1. ACETAMINOPHEN AND TRAMADOL HCL [Suspect]
     Indication: ARTHRALGIA
     Dosage: 1-2 PO Q 6 H PRN
     Route: 048
     Dates: start: 20050801
  2. ACETAMINOPHEN AND TRAMADOL HCL [Suspect]
     Indication: BACK PAIN
     Dosage: 1-2 PO Q 6 H PRN
     Route: 048
     Dates: start: 20050801

REACTIONS (1)
  - NAUSEA [None]
